FAERS Safety Report 6542612-5 (Version None)
Quarter: 2010Q1

REPORT INFORMATION
  Report Type: 
  Country: None (occurrence: None)
  Receive Date: 20100114
  Receipt Date: 20100105
  Transmission Date: 20100710
  Serious: Yes (Hospitalization, Other)
  Sender: FDA-Public Use
  Company Number: 2006-145229-NL

PATIENT
  Age: 40 Year
  Sex: Female

DRUGS (7)
  1. NUVARING [Suspect]
     Indication: DRUG USE FOR UNKNOWN INDICATION
     Dosage: VAG
     Route: 067
     Dates: start: 20030801
  2. EFFEXOR XR [Concomitant]
  3. IMIPRAMINE [Concomitant]
  4. TYLENOL W/ CODEINE [Concomitant]
  5. ALLEGRA [Concomitant]
  6. TYLENOL [Concomitant]
  7. BENADRYL [Concomitant]

REACTIONS (33)
  - ABORTION INDUCED [None]
  - ACNE [None]
  - ACTIVATED PARTIAL THROMBOPLASTIN TIME PROLONGED [None]
  - AMNESIA [None]
  - ANXIETY [None]
  - ARRHYTHMIA [None]
  - ARTHRALGIA [None]
  - AUTONOMIC NERVOUS SYSTEM IMBALANCE [None]
  - BREAST DISCHARGE [None]
  - BREAST HYPERPLASIA [None]
  - CEREBROVASCULAR ACCIDENT [None]
  - DEEP VEIN THROMBOSIS [None]
  - DEPRESSION [None]
  - ECZEMA [None]
  - EPISTAXIS [None]
  - EYELID PTOSIS [None]
  - FIBROCYSTIC BREAST DISEASE [None]
  - GINGIVAL BLEEDING [None]
  - HAEMANGIOMA OF LIVER [None]
  - HEADACHE [None]
  - HYPERCOAGULATION [None]
  - JOINT STIFFNESS [None]
  - LOSS OF CONSCIOUSNESS [None]
  - MENORRHAGIA [None]
  - MIGRAINE [None]
  - MITRAL VALVE PROLAPSE [None]
  - MUSCLE SPASMS [None]
  - MYALGIA [None]
  - PAIN [None]
  - POST THROMBOTIC SYNDROME [None]
  - PROTHROMBIN TIME PROLONGED [None]
  - SKIN DISCOLOURATION [None]
  - VENOUS INSUFFICIENCY [None]
